FAERS Safety Report 18241455 (Version 2)
Quarter: 2020Q3

REPORT INFORMATION
  Report Type: Other
  Country: DE (occurrence: DE)
  Receive Date: 20200908
  Receipt Date: 20200925
  Transmission Date: 20201103
  Serious: Yes (Hospitalization, Other)
  Sender: FDA-Public Use
  Company Number: DE-EMCURE PHARMACEUTICALS LTD-2018-EPL-004413

PATIENT
  Age: 70 Year
  Sex: Female
  Weight: 89 kg

DRUGS (7)
  1. METOPROLOL. [Concomitant]
     Active Substance: METOPROLOL
     Indication: HYPERTENSION
     Dosage: 47.5 MILLIGRAM
  2. METOPROLOL. [Concomitant]
     Active Substance: METOPROLOL
     Dosage: 47.5 MILLIGRAM
  3. TRASTUZUMAB. [Suspect]
     Active Substance: TRASTUZUMAB
     Indication: HER2 POSITIVE BREAST CANCER
     Dosage: 6 MILLIGRAM/KILOGRAM IN 21 DAYS (DAY 1, ON 08/DEC/2018, MOST RECENT DOSE OF TRASTUZUMAB WAS RECEIVED
     Route: 042
     Dates: start: 20171006
  4. LOSARTAN. [Concomitant]
     Active Substance: LOSARTAN
     Indication: HYPERTENSION
     Dosage: UNK
  5. PERTUZUMAB. [Suspect]
     Active Substance: PERTUZUMAB
     Indication: HER2 POSITIVE BREAST CANCER
     Dosage: 420 MILLIGRAM IN 21 DAYS, (DAY 1, ON 08/DEC/2018, MOST RECENT DOSE OF PERTUZUMAB WAS RECEIVED.)
     Dates: start: 20171006
  6. ZOLEDRONIC ACID [Suspect]
     Active Substance: ZOLEDRONIC ACID
     Indication: HER2 POSITIVE BREAST CANCER
     Dosage: 4 MILLIGRAM IN 28 DAYS, (ON 01/DEC/2017, RECEIVED MOST RECENT DOSE OF ZOLEDRONIC ACID)
     Dates: start: 20171103
  7. GROS [Suspect]
     Active Substance: PACLITAXEL
     Indication: HER2 POSITIVE BREAST CANCER
     Dosage: 80 MILLIGRAM/SQ. METER IN 21 DAYS, (DAY 1, 8 AND 15, ON 08/DEC/2018, MOST RECENT DOSE OF PACLITAXEL
     Dates: start: 20171006

REACTIONS (9)
  - Malaise [Recovered/Resolved]
  - Decreased appetite [Recovered/Resolved]
  - General physical health deterioration [Unknown]
  - Diarrhoea [Recovered/Resolved]
  - Nasopharyngitis [Recovered/Resolved]
  - Skin toxicity [Recovered/Resolved]
  - Toxic epidermal necrolysis [Recovered/Resolved]
  - Nail discolouration [Recovered/Resolved]
  - Dyspnoea [Recovered/Resolved]

NARRATIVE: CASE EVENT DATE: 20171016
